FAERS Safety Report 9945819 (Version 1)
Quarter: 2014Q1

REPORT INFORMATION
  Report Type: Spontaneous
  Country: US (occurrence: US)
  Receive Date: 20140303
  Receipt Date: 20140303
  Transmission Date: 20141002
  Serious: Yes (Other)
  Sender: FDA-Public Use
  Company Number: US-AMGEN-USASP2013070659

PATIENT
  Age: 67 Year
  Sex: Male

DRUGS (11)
  1. ENBREL [Suspect]
     Indication: PRODUCT USED FOR UNKNOWN INDICATION
     Dosage: 50 MG, QWK
     Route: 058
  2. LISINOPRIL [Concomitant]
     Dosage: 5 MG, UNK
  3. ASPIRIN [Concomitant]
     Dosage: 81 MG, UNK
  4. METHOTREXATE [Concomitant]
     Dosage: 2.5 MG, UNK
  5. FOLIC ACID [Concomitant]
     Dosage: UNK (XTRA)
  6. TRAMADOL HCL [Concomitant]
     Dosage: 50 MG, UNK
  7. MULTIVITAMINS, PLAIN [Concomitant]
     Dosage: UNK
  8. METFORMIN [Concomitant]
     Dosage: 850 MG, UNK
  9. ASACOL [Concomitant]
     Dosage: 400 MG, (DR) UNK
  10. PROBIOTICS [Concomitant]
     Dosage: UNK
  11. DIGESTIVES ENZYMES [Concomitant]
     Dosage: UNK

REACTIONS (1)
  - Colitis ulcerative [Unknown]
